FAERS Safety Report 10254232 (Version 3)
Quarter: 2015Q3

REPORT INFORMATION
  Report Type: Report from Study
  Country: US (occurrence: US)
  Receive Date: 20140624
  Receipt Date: 20150824
  Transmission Date: 20151125
  Serious: No
  Sender: FDA-Public Use
  Company Number: US-AMGEN-USASP2014046278

PATIENT
  Age: 58 Year
  Sex: Female

DRUGS (1)
  1. ENBREL [Suspect]
     Active Substance: ETANERCEPT
     Indication: PSORIASIS
     Dosage: 50 MG, 2 TIMES/WK
     Route: 065
     Dates: start: 20140109

REACTIONS (6)
  - Rash [Unknown]
  - Skin discolouration [Unknown]
  - Psoriasis [Unknown]
  - Pruritus [Unknown]
  - Drug ineffective [Unknown]
  - Skin irritation [Unknown]
